APPROVED DRUG PRODUCT: DAURISMO
Active Ingredient: GLASDEGIB MALEATE
Strength: EQ 25MG BASE
Dosage Form/Route: TABLET;ORAL
Application: N210656 | Product #001
Applicant: PFIZER INC
Approved: Nov 21, 2018 | RLD: Yes | RS: No | Type: RX

PATENTS:
Patent 11168066 | Expires: Apr 13, 2036
Patent 11891372 | Expires: Apr 13, 2036
Patent 8148401 | Expires: Apr 14, 2029
Patent 10414748 | Expires: Apr 13, 2036
Patent 8431597 | Expires: Jun 29, 2028